FAERS Safety Report 5599730-8 (Version None)
Quarter: 2008Q1

REPORT INFORMATION
  Report Type: 
  Country: None (occurrence: None)
  Receive Date: 20080123
  Receipt Date: 20080116
  Transmission Date: 20080703
  Serious: Yes (Other)
  Sender: FDA-Public Use
  Company Number: JP-BRISTOL-MYERS SQUIBB COMPANY-14043061

PATIENT

DRUGS (3)
  1. ETOPOSIDE [Suspect]
     Indication: TESTIS CANCER
  2. CARBOPLATIN [Suspect]
     Indication: TESTIS CANCER
  3. IFOSFAMIDE [Suspect]
     Indication: TESTIS CANCER
     Dosage: 1 DOSAGE FORM = 7.5G/M2

REACTIONS (1)
  - AZOOSPERMIA [None]
